FAERS Safety Report 22995948 (Version 2)
Quarter: 2024Q2

REPORT INFORMATION
  Report Type: Report from Study
  Country: US (occurrence: US)
  Receive Date: 20230927
  Receipt Date: 20240425
  Transmission Date: 20240717
  Serious: No
  Sender: FDA-Public Use
  Company Number: US-002147023-NVSC2023US204138

PATIENT
  Sex: Female

DRUGS (1)
  1. PIQRAY [Suspect]
     Active Substance: ALPELISIB
     Indication: Product used for unknown indication
     Dosage: UNK
     Route: 065

REACTIONS (1)
  - Rash [Unknown]
